FAERS Safety Report 23035727 (Version 1)
Quarter: 2023Q4

REPORT INFORMATION
  Report Type: Spontaneous
  Country: US (occurrence: US)
  Receive Date: 20231006
  Receipt Date: 20231006
  Transmission Date: 20240110
  Serious: No
  Sender: FDA-Public Use
  Company Number: US-APOTEX-2023AP008107

PATIENT
  Sex: Male

DRUGS (10)
  1. ACYCLOVIR [Suspect]
     Active Substance: ACYCLOVIR
     Indication: Prophylaxis
     Dosage: 680 MILLIGRAM, BID (55 MG/KG/DAY)
     Route: 048
  2. ACYCLOVIR [Suspect]
     Active Substance: ACYCLOVIR
     Indication: Herpes simplex
     Dosage: 700 MILLIGRAM, BID (49 MG/KG/DAY)
     Route: 048
  3. ACYCLOVIR [Suspect]
     Active Substance: ACYCLOVIR
     Dosage: 880 MILLIGRAM, BID (67 MG/KG/DAY)
     Route: 048
  4. ACYCLOVIR [Suspect]
     Active Substance: ACYCLOVIR
     Dosage: 30 MILLIGRAM/KILOGRAM, QD
     Route: 048
  5. ACYCLOVIR [Suspect]
     Active Substance: ACYCLOVIR
     Dosage: 120 MILLIGRAM/KILOGRAM, QD
     Route: 048
  6. ACYCLOVIR [Suspect]
     Active Substance: ACYCLOVIR
     Indication: Prophylaxis
     Dosage: 30 MILLIGRAM/KILOGRAM, QD
     Route: 042
  7. ACYCLOVIR [Suspect]
     Active Substance: ACYCLOVIR
     Indication: Herpes simplex
     Dosage: 60 MILLIGRAM/KILOGRAM, QD
     Route: 042
  8. FOSCARNET [Concomitant]
     Active Substance: FOSCARNET
     Indication: Scrotal ulcer
     Dosage: 120 MILLIGRAM/KILOGRAM, QD
     Route: 042
  9. INTERFERON [Concomitant]
     Active Substance: INTERFERON
     Indication: Scrotal ulcer
     Dosage: UNK
     Route: 065
  10. CIDOFOVIR [Concomitant]
     Active Substance: CIDOFOVIR
     Indication: Scrotal ulcer
     Dosage: UNK
     Route: 061

REACTIONS (1)
  - Drug resistance [Unknown]
